FAERS Safety Report 5403911-3 (Version None)
Quarter: 2007Q3

REPORT INFORMATION
  Report Type: 
  Country: None (occurrence: None)
  Receive Date: 20070731
  Receipt Date: 20070731
  Transmission Date: 20080115
  Serious: Yes (Hospitalization)
  Sender: FDA-Public Use
  Company Number: None

PATIENT
  Sex: Female
  Weight: 63.2 kg

DRUGS (4)
  1. FLUOROURACIL [Suspect]
     Dosage: 15696 MG
     Dates: end: 20070726
  2. BEVACIZUMAB (RHUMAB VEGF) [Suspect]
     Dosage: 1506 MG
     Dates: end: 20070724
  3. LEUCOVORIN CALCIUM [Suspect]
     Dosage: 2593 MG
     Dates: end: 20070724
  4. ELOXATIN [Suspect]
     Dosage: 482 MG
     Dates: end: 20070724

REACTIONS (3)
  - DEEP VEIN THROMBOSIS [None]
  - OEDEMA PERIPHERAL [None]
  - PAIN IN EXTREMITY [None]
